FAERS Safety Report 9914138 (Version 1)
Quarter: 2014Q1

REPORT INFORMATION
  Report Type: Spontaneous
  Country: US (occurrence: US)
  Receive Date: 20140220
  Receipt Date: 20140220
  Transmission Date: 20141002
  Serious: Yes (Hospitalization)
  Sender: FDA-Public Use
  Company Number: US-PFIZER INC-2014044606

PATIENT
  Age: 71 Year
  Sex: Female

DRUGS (3)
  1. XANAX [Suspect]
     Dosage: UNK
  2. ADVIL PM [Suspect]
     Dosage: 2 DF, 1X/DAY
  3. CENTRUM SILVER ADULTS 50+ [Suspect]
     Dosage: UNK

REACTIONS (2)
  - Influenza [Unknown]
  - Blood calcium increased [Unknown]
